FAERS Safety Report 6464288-8 (Version None)
Quarter: 2009Q4

REPORT INFORMATION
  Report Type: 
  Country: None (occurrence: None)
  Receive Date: 20091201
  Receipt Date: 20091118
  Transmission Date: 20100525
  Serious: Yes (Death)
  Sender: FDA-Public Use
  Company Number: JP-ABBOTT-09P-087-0606983-00

PATIENT
  Age: 70 Year
  Sex: Male

DRUGS (14)
  1. LEUPLIN SR FOR INJECTION 11.25 MG [Suspect]
     Indication: PROSTATE CANCER STAGE IV
     Route: 058
     Dates: start: 20071030, end: 20080630
  2. FLUTAMIDE [Suspect]
     Indication: PROSTATE CANCER STAGE IV
     Route: 048
     Dates: start: 20080225, end: 20080312
  3. BICALUTAMIDE [Concomitant]
     Indication: PROSTATE CANCER STAGE IV
     Route: 048
     Dates: start: 20070224, end: 20080225
  4. ESTRAMUSTINE PHOSPHATE SODIUM [Concomitant]
     Indication: PROSTATE CANCER STAGE IV
     Route: 048
     Dates: start: 20080312, end: 20080413
  5. OMEPRAL [Concomitant]
     Indication: REFLUX OESOPHAGITIS
     Route: 048
     Dates: end: 20080723
  6. DIOVAN HCT [Concomitant]
     Indication: HYPERTENSION
     Route: 048
     Dates: end: 20080723
  7. GANATON [Concomitant]
     Indication: GASTRITIS
     Route: 048
     Dates: end: 20080723
  8. OXYCONTIN [Concomitant]
     Indication: CANCER PAIN
     Route: 048
     Dates: start: 20080225
  9. OXYCONTIN [Concomitant]
     Route: 048
     Dates: end: 20080723
  10. HARNAL D [Concomitant]
     Indication: BENIGN PROSTATIC HYPERPLASIA
     Route: 048
     Dates: end: 20080413
  11. LOXONIN [Concomitant]
     Indication: BACK PAIN
     Route: 048
     Dates: end: 20080723
  12. MUCOSTA [Concomitant]
     Indication: GASTRITIS
     Route: 048
     Dates: end: 20080723
  13. RINDERON [Concomitant]
     Indication: PROSTATE CANCER STAGE IV
     Route: 048
     Dates: start: 20080415, end: 20080527
  14. OPSO [Concomitant]
     Indication: CANCER PAIN
     Route: 048
     Dates: start: 20080407, end: 20080723

REACTIONS (5)
  - ALANINE AMINOTRANSFERASE INCREASED [None]
  - ASPARTATE AMINOTRANSFERASE INCREASED [None]
  - HEPATIC FUNCTION ABNORMAL [None]
  - MALIGNANT NEOPLASM PROGRESSION [None]
  - PROSTATE CANCER [None]
